FAERS Safety Report 21894192 (Version 1)
Quarter: 2023Q1

REPORT INFORMATION
  Report Type: Spontaneous
  Country: NL (occurrence: NL)
  Receive Date: 20230121
  Receipt Date: 20230121
  Transmission Date: 20230418
  Serious: Yes (Life-Threatening, Other)
  Sender: FDA-Public Use
  Company Number: NL-LRB-00860726

PATIENT
  Sex: Female
  Weight: 112 kg

DRUGS (1)
  1. AMIODARONE [Suspect]
     Active Substance: AMIODARONE
     Indication: Atrial fibrillation
     Dosage: 900 MILLIGRAM(900MG PER 24UUR)
     Route: 065
     Dates: start: 20221228, end: 20221229

REACTIONS (2)
  - Blood lactic acid [Recovering/Resolving]
  - Acute hepatic failure [Recovering/Resolving]
